FAERS Safety Report 8305426-1 (Version None)
Quarter: 2012Q2

REPORT INFORMATION
  Report Type: 
  Country: None (occurrence: None)
  Receive Date: 20120423
  Receipt Date: 20120412
  Transmission Date: 20120825
  Serious: Yes (Death)
  Sender: FDA-Public Use
  Company Number: PHHY2012AR031433

PATIENT
  Age: 3 Month
  Sex: Female

DRUGS (5)
  1. PHENOBARBITAL TAB [Suspect]
     Indication: CONVULSION
  2. LEVETIRACETAM [Suspect]
     Indication: CONVULSION
  3. CLONAZEPAM [Suspect]
     Indication: CONVULSION
  4. PYRIDOXINE HCL [Suspect]
     Indication: CONVULSION
  5. CARBAMAZEPINE [Suspect]
     Indication: CONVULSION
     Route: 048

REACTIONS (2)
  - PULMONARY OEDEMA [None]
  - DRUG INEFFECTIVE [None]
